FAERS Safety Report 18195755 (Version 1)
Quarter: 2020Q3

REPORT INFORMATION
  Report Type: Spontaneous
  Country: ES (occurrence: ES)
  Receive Date: 20200825
  Receipt Date: 20200825
  Transmission Date: 20201103
  Serious: Yes (Death, Other)
  Sender: FDA-Public Use
  Company Number: ES-GILEAD-2020-0482933

PATIENT
  Age: 67 Year
  Sex: Female

DRUGS (3)
  1. GEMOX [GEMFIBROZIL] [Concomitant]
  2. RITUXIMAB. [Concomitant]
     Active Substance: RITUXIMAB
  3. YESCARTA [Suspect]
     Active Substance: AXICABTAGENE CILOLEUCEL
     Indication: DIFFUSE LARGE B-CELL LYMPHOMA
     Dosage: UNK
     Route: 042
     Dates: start: 20200702, end: 20200702

REACTIONS (6)
  - Neurotoxicity [Not Recovered/Not Resolved]
  - Systemic mycosis [Fatal]
  - Septic shock [Fatal]
  - Cytokine release syndrome [Recovered/Resolved]
  - Escherichia infection [Fatal]
  - Stenotrophomonas infection [Fatal]

NARRATIVE: CASE EVENT DATE: 20200703
